FAERS Safety Report 12370636 (Version 1)
Quarter: 2016Q2

REPORT INFORMATION
  Report Type: Not Available
  Country: GB (occurrence: GB)
  Receive Date: 20160516
  Receipt Date: 20160516
  Transmission Date: 20160815
  Serious: Yes (Other)
  Sender: FDA-Public Use
  Company Number: GB-MIDATECHPHARMA-2016-UK-000008

PATIENT
  Age: 52 Year
  Sex: Female

DRUGS (1)
  1. TAMOXIFEN (NON-SPECIFIC) [Suspect]
     Active Substance: TAMOXIFEN
     Dosage: 20 MG DAILY

REACTIONS (3)
  - Retinal deposits [Unknown]
  - Retinopathy [Unknown]
  - Retinal cyst [Unknown]

NARRATIVE: CASE EVENT DATE: 2014
